FAERS Safety Report 9402356 (Version 1)
Quarter: 2013Q3

REPORT INFORMATION
  Report Type: Spontaneous
  Country: GB (occurrence: GB)
  Receive Date: 20130716
  Receipt Date: 20130716
  Transmission Date: 20140515
  Serious: Yes (Other)
  Sender: FDA-Public Use
  Company Number: GB-PFIZER INC-2013205825

PATIENT
  Age: 81 Year
  Sex: Female

DRUGS (2)
  1. AMLODIPINE BESILATE [Suspect]
     Indication: BLOOD PRESSURE ABNORMAL
     Dosage: 5 MG, DAILY
  2. RANIBIZUMAB [Concomitant]
     Dosage: UNK

REACTIONS (2)
  - Macular degeneration [Not Recovered/Not Resolved]
  - Visual impairment [Not Recovered/Not Resolved]
